FAERS Safety Report 5956993-4 (Version None)
Quarter: 2008Q4

REPORT INFORMATION
  Report Type: 
  Country: None (occurrence: None)
  Receive Date: 20081031
  Receipt Date: 20080819
  Transmission Date: 20090506
  Serious: No
  Sender: FDA-Public Use
  Company Number: 2008PV036500

PATIENT
  Sex: Female

DRUGS (6)
  1. SYMLINPEN  60 (PRAMLINTIDE ACETATE) PEN-INJECTOR (1.0 MG/ML) [Suspect]
     Indication: TYPE 1 DIABETES MELLITUS
     Dosage: 60 MCG;TID;SC; 45 MCG;TID;SC; 30 MCG;TID;SC; 15  MCG;TID;SC
     Route: 057
     Dates: start: 20080101, end: 20080101
  2. SYMLINPEN  60 (PRAMLINTIDE ACETATE) PEN-INJECTOR (1.0 MG/ML) [Suspect]
     Indication: TYPE 1 DIABETES MELLITUS
     Dosage: 60 MCG;TID;SC; 45 MCG;TID;SC; 30 MCG;TID;SC; 15  MCG;TID;SC
     Route: 057
     Dates: start: 20080101, end: 20080101
  3. SYMLINPEN  60 (PRAMLINTIDE ACETATE) PEN-INJECTOR (1.0 MG/ML) [Suspect]
     Indication: TYPE 1 DIABETES MELLITUS
     Dosage: 60 MCG;TID;SC; 45 MCG;TID;SC; 30 MCG;TID;SC; 15  MCG;TID;SC
     Route: 057
     Dates: start: 20080101, end: 20080101
  4. SYMLINPEN  60 (PRAMLINTIDE ACETATE) PEN-INJECTOR (1.0 MG/ML) [Suspect]
     Indication: TYPE 1 DIABETES MELLITUS
     Dosage: 60 MCG;TID;SC; 45 MCG;TID;SC; 30 MCG;TID;SC; 15  MCG;TID;SC
     Route: 057
     Dates: start: 20080101
  5. NASONEX [Concomitant]
  6. MUCINEX [Concomitant]

REACTIONS (2)
  - LETHARGY [None]
  - UPPER RESPIRATORY TRACT CONGESTION [None]
